FAERS Safety Report 10653760 (Version 1)
Quarter: 2014Q4

REPORT INFORMATION
  Report Type: Spontaneous
  Country: US (occurrence: None)
  Receive Date: 20141212
  Receipt Date: 20141212
  Transmission Date: 20150529
  Serious: Yes (Life-Threatening, Other)
  Sender: FDA-Public Use
  Company Number: None

PATIENT
  Age: 68 Year
  Sex: Female
  Weight: 62.6 kg

DRUGS (3)
  1. TAPAZOLE [Suspect]
     Active Substance: METHIMAZOLE
     Indication: BASEDOW^S DISEASE
     Dosage: 5 MG ONCE A DAY BY MOUTH.
     Route: 048
     Dates: start: 20120814, end: 20121012
  2. L-LYSINE [Concomitant]
     Active Substance: LYSINE
  3. LUGOLIS IODINE [Concomitant]

REACTIONS (4)
  - Malaise [None]
  - Wrong technique in drug usage process [None]
  - Product substitution issue [None]
  - Blood bilirubin increased [None]

NARRATIVE: CASE EVENT DATE: 20120814
